FAERS Safety Report 9836768 (Version 2)
Quarter: 2014Q1

REPORT INFORMATION
  Report Type: Spontaneous
  Country: US (occurrence: US)
  Receive Date: 20140123
  Receipt Date: 20140129
  Transmission Date: 20141002
  Serious: No
  Sender: FDA-Public Use
  Company Number: US-PFIZER INC-2014016158

PATIENT
  Age: 54 Year
  Sex: Female

DRUGS (5)
  1. FLAGYL [Suspect]
     Dosage: UNK
  2. RISPERIDONE [Suspect]
     Dosage: UNK
  3. CODEINE [Suspect]
     Dosage: UNK
  4. HYDROCODEINE [Suspect]
     Dosage: UNK
  5. DEPAKOTE [Suspect]
     Dosage: UNK

REACTIONS (2)
  - Drug hypersensitivity [Unknown]
  - Drug intolerance [Unknown]
